FAERS Safety Report 12633095 (Version 2)
Quarter: 2016Q3

REPORT INFORMATION
  Report Type: Spontaneous
  Country: US (occurrence: US)
  Receive Date: 20160808
  Receipt Date: 20160808
  Transmission Date: 20161109
  Serious: No
  Sender: FDA-Public Use
  Company Number: US-BEH-2016058429

PATIENT
  Age: 39 Year
  Sex: Female
  Weight: 78 kg

DRUGS (16)
  1. PREDNISONE. [Concomitant]
     Active Substance: PREDNISONE
  2. TOPAMAX [Concomitant]
     Active Substance: TOPIRAMATE
  3. TIZANDINE [Concomitant]
     Active Substance: TIZANIDINE
  4. EXCEDRIN [Concomitant]
     Active Substance: ACETAMINOPHEN\ASPIRIN\CAFFEINE
  5. FLURBIPROFEN. [Concomitant]
     Active Substance: FLURBIPROFEN
  6. ALEVE [Concomitant]
     Active Substance: NAPROXEN SODIUM
  7. EPIPEN [Concomitant]
     Active Substance: EPINEPHRINE
  8. LEVAQUIN [Concomitant]
     Active Substance: LEVOFLOXACIN
  9. RELPAX [Concomitant]
     Active Substance: ELETRIPTAN HYDROBROMIDE
  10. LAMICTAL [Concomitant]
     Active Substance: LAMOTRIGINE
  11. HIZENTRA [Suspect]
     Active Substance: HUMAN IMMUNOGLOBULIN G
     Indication: IMMUNODEFICIENCY COMMON VARIABLE
     Route: 058
     Dates: start: 20130723
  12. TESSALON [Concomitant]
     Active Substance: BENZONATATE
  13. DIPHENHYDRAMINE. [Concomitant]
     Active Substance: DIPHENHYDRAMINE
  14. SYMBICORT [Concomitant]
     Active Substance: BUDESONIDE\FORMOTEROL FUMARATE DIHYDRATE
  15. DIAZEPAM. [Concomitant]
     Active Substance: DIAZEPAM
  16. AMITRIPTYLINE [Concomitant]
     Active Substance: AMITRIPTYLINE

REACTIONS (2)
  - Bronchitis [Unknown]
  - Sinusitis [Unknown]

NARRATIVE: CASE EVENT DATE: 201511
